FAERS Safety Report 8767554 (Version 2)
Quarter: 2012Q4

REPORT INFORMATION
  Report Type: 
  Country: US (occurrence: US)
  Receive Date: 20120904
  Receipt Date: 20120907
  Transmission Date: 20130627
  Serious: Yes (Other)
  Sender: FDA-Public Use
  Company Number: PHHY2012US075108

PATIENT
  Age: 71 Year
  Sex: Male

DRUGS (3)
  1. BUFFERIN REGULAR STRENGTH [Suspect]
     Indication: ARTHRITIS
     Dosage: 1 DF, 5QD
     Route: 048
     Dates: start: 2009
  2. ASCRIPTIN BUFFERED CAPS UNKNOWN FORMULA [Suspect]
  3. OXYCODONE [Concomitant]

REACTIONS (3)
  - Psychotic disorder [Recovering/Resolving]
  - Somnambulism [Recovering/Resolving]
  - Incorrect drug administration duration [Unknown]
